FAERS Safety Report 8512857-3 (Version None)
Quarter: 2012Q3

REPORT INFORMATION
  Report Type: 
  Country: None (occurrence: None)
  Receive Date: 20120716
  Receipt Date: 20120705
  Transmission Date: 20120928
  Serious: Yes (Other)
  Sender: FDA-Public Use
  Company Number: JP-VERTEX PHARMACEUTICALS INC.-AE-2012-010103

PATIENT
  Age: 61 Year
  Sex: Male

DRUGS (9)
  1. PEGINTERFERON ALFA-2B [Concomitant]
     Indication: HEPATITIS C
     Route: 058
     Dates: start: 20120409
  2. RIBAVIRIN [Concomitant]
     Route: 048
     Dates: start: 20120416, end: 20120610
  3. TELAVIC (TELAPREVIR) [Suspect]
     Indication: HEPATITIS C
     Route: 048
     Dates: start: 20120409
  4. VOLTAREN-XR [Concomitant]
     Route: 048
     Dates: start: 20120426
  5. RIBAVIRIN [Concomitant]
     Route: 048
     Dates: start: 20120618
  6. VOLTAREN [Concomitant]
     Route: 054
     Dates: start: 20120409
  7. ANTEBATE:OINTMENT [Concomitant]
     Route: 061
     Dates: start: 20120415
  8. RIBAVIRIN [Concomitant]
     Indication: HEPATITIS C
     Route: 048
     Dates: start: 20120409, end: 20120415
  9. RIBAVIRIN [Concomitant]
     Route: 048
     Dates: start: 20120611, end: 20120617

REACTIONS (2)
  - RENAL IMPAIRMENT [None]
  - HYPERURICAEMIA [None]
